FAERS Safety Report 5628555-X (Version None)
Quarter: 2008Q1

REPORT INFORMATION
  Report Type: 
  Country: None (occurrence: None)
  Receive Date: 20080215
  Receipt Date: 20080206
  Transmission Date: 20080703
  Serious: Yes (Death)
  Sender: FDA-Public Use
  Company Number: JP-MERCK-0802USA01865

PATIENT
  Age: 72 Year
  Sex: Female

DRUGS (2)
  1. PRIMAXIN [Suspect]
     Indication: CELLULITIS
     Route: 065
     Dates: start: 20060801
  2. FLUCONAZOLE [Concomitant]
     Indication: CELLULITIS
     Route: 065
     Dates: start: 20060801

REACTIONS (2)
  - PNEUMONIA [None]
  - SEPTIC SHOCK [None]
